FAERS Safety Report 13123260 (Version 1)
Quarter: 2017Q1

REPORT INFORMATION
  Report Type: Report from Study
  Country: US (occurrence: US)
  Receive Date: 20170117
  Receipt Date: 20170117
  Transmission Date: 20170428
  Serious: No
  Sender: FDA-Public Use
  Company Number: US-AMGEN-USASL2016169680

PATIENT
  Age: 65 Year
  Sex: Male
  Weight: 63.3 kg

DRUGS (9)
  1. EFFEXOR [Concomitant]
     Active Substance: VENLAFAXINE HYDROCHLORIDE
     Dosage: 150 MG, QD
  2. MEGESTROL ACETATE. [Concomitant]
     Active Substance: MEGESTROL ACETATE
     Dosage: 40 MG/ML, QD
  3. HYDROCORTISONE. [Concomitant]
     Active Substance: HYDROCORTISONE
     Dosage: 10 MG, TWO TABLET QAM AND ONE TABLET QPM.
  4. LORAZEPAM. [Concomitant]
     Active Substance: LORAZEPAM
     Dosage: 0.5 MG, AS NEEDED
  5. DIGOXIN. [Concomitant]
     Active Substance: DIGOXIN
     Dosage: 250 MUG, QD
  6. FOLIC ACID. [Concomitant]
     Active Substance: FOLIC ACID
     Dosage: 400 MUG, PRN
  7. LAMICTAL [Concomitant]
     Active Substance: LAMOTRIGINE
     Dosage: 25 MG, QD
  8. CORLANOR [Suspect]
     Active Substance: IVABRADINE HYDROCHLORIDE
     Indication: CARDIOMYOPATHY
     Dosage: 5 MG, BID
     Route: 048
  9. ASPIRIN. [Concomitant]
     Active Substance: ASPIRIN
     Dosage: 81 MG, QD

REACTIONS (1)
  - Off label use [Unknown]
